FAERS Safety Report 11222062 (Version 1)
Quarter: 2015Q2

REPORT INFORMATION
  Report Type: Spontaneous
  Country: US (occurrence: US)
  Receive Date: 20150626
  Receipt Date: 20150626
  Transmission Date: 20150821
  Serious: Yes (Hospitalization)
  Sender: FDA-Public Use
  Company Number: US-ACTELION-A-US2015-119792

PATIENT
  Age: 59 Year
  Sex: Female

DRUGS (14)
  1. GABAPENTIN. [Concomitant]
     Active Substance: GABAPENTIN
  2. MS CONTIN DAINIPPO [Concomitant]
  3. OPSUMIT [Suspect]
     Active Substance: MACITENTAN
     Indication: PULMONARY ARTERIAL HYPERTENSION
     Dosage: 10 MG, QD
     Route: 048
     Dates: start: 20140110
  4. OXCARBAZEPINE. [Concomitant]
     Active Substance: OXCARBAZEPINE
  5. ELIQUIS [Concomitant]
     Active Substance: APIXABAN
  6. TORSEMIDE. [Concomitant]
     Active Substance: TORSEMIDE
  7. FAMOTIDINE. [Concomitant]
     Active Substance: FAMOTIDINE
  8. REMODULIN [Concomitant]
     Active Substance: TREPROSTINIL
  9. DEXTROSE. [Concomitant]
     Active Substance: DEXTROSE
  10. NYSTATIN. [Concomitant]
     Active Substance: NYSTATIN
  11. ONDANSETRON [Concomitant]
     Active Substance: ONDANSETRON
  12. SILDENAFIL. [Concomitant]
     Active Substance: SILDENAFIL
  13. METOPROLOL [Concomitant]
     Active Substance: METOPROLOL
  14. POTASSIUM CHLORIDE. [Concomitant]
     Active Substance: POTASSIUM CHLORIDE

REACTIONS (2)
  - Pain [Not Recovered/Not Resolved]
  - Skin ulcer [Not Recovered/Not Resolved]

NARRATIVE: CASE EVENT DATE: 201503
